FAERS Safety Report 4863361-5 (Version None)
Quarter: 2005Q4

REPORT INFORMATION
  Report Type: 
  Country: None (occurrence: None)
  Receive Date: 20051222
  Receipt Date: 20040608
  Transmission Date: 20060501
  Serious: No
  Sender: FDA-Public Use
  Company Number: US-GLAXOSMITHKLINE-A0513819A

PATIENT
  Sex: Female

DRUGS (1)
  1. FLONASE [Suspect]
     Dosage: 200MCG PER DAY
     Route: 045
     Dates: start: 20040901, end: 20040901

REACTIONS (2)
  - BLOODY DISCHARGE [None]
  - EPISTAXIS [None]
